FAERS Safety Report 6965653-2 (Version None)
Quarter: 2010Q3

REPORT INFORMATION
  Report Type: 
  Country: None (occurrence: None)
  Receive Date: 20100903
  Receipt Date: 20100830
  Transmission Date: 20110219
  Serious: Yes (Other)
  Sender: FDA-Public Use
  Company Number: JP-BRACCO-003897

PATIENT
  Age: 57 Year
  Sex: Female

DRUGS (1)
  1. PROHANCE [Suspect]
     Indication: LIVER SCAN
     Route: 042
     Dates: start: 20100826, end: 20100826

REACTIONS (1)
  - SHOCK [None]
